FAERS Safety Report 6489692-3 (Version None)
Quarter: 2009Q4

REPORT INFORMATION
  Report Type: 
  Country: None (occurrence: None)
  Receive Date: 20091207
  Receipt Date: 20091202
  Transmission Date: 20100525
  Serious: Yes (Other)
  Sender: FDA-Public Use
  Company Number: 1000010529

PATIENT
  Age: 41 Year
  Sex: Male

DRUGS (1)
  1. LEXAPRO [Suspect]
     Indication: ANXIETY
     Dosage: 10 MG (10 MG, 1 IN 1 D), ORAL
     Route: 048
     Dates: start: 20091001

REACTIONS (2)
  - BENIGN INTRACRANIAL HYPERTENSION [None]
  - MIGRAINE [None]
